FAERS Safety Report 7052645-0 (Version None)
Quarter: 2010Q4

REPORT INFORMATION
  Report Type: 
  Country: None (occurrence: None)
  Receive Date: 20101019
  Receipt Date: 20090107
  Transmission Date: 20110411
  Serious: Yes (Other)
  Sender: FDA-Public Use
  Company Number: US-AMGEN GMBH-US315628

PATIENT

DRUGS (5)
  1. ARANESP [Suspect]
     Indication: MYELODYSPLASTIC SYNDROME
     Dosage: 300 A?G, Q2WK
     Route: 065
     Dates: start: 20070901, end: 20080917
  2. PROCRIT [Suspect]
     Indication: MYELODYSPLASTIC SYNDROME
     Dosage: UNK UNK, UNK
     Route: 065
     Dates: start: 20070401, end: 20070901
  3. PROPAFENONE HCL [Concomitant]
  4. ALFUZOSIN [Concomitant]
  5. LUMIGAN [Concomitant]

REACTIONS (2)
  - DISEASE PROGRESSION [None]
  - MYELODYSPLASTIC SYNDROME [None]
